FAERS Safety Report 5772271-0 (Version None)
Quarter: 2008Q2

REPORT INFORMATION
  Report Type: 
  Country: None (occurrence: None)
  Receive Date: 20080613
  Receipt Date: 20080605
  Transmission Date: 20081010
  Serious: Yes (Other)
  Sender: FDA-Public Use
  Company Number: PHEH2008US04873

PATIENT
  Sex: Female
  Weight: 76.1 kg

DRUGS (4)
  1. EXJADE [Suspect]
     Indication: MYELODYSPLASTIC SYNDROME
     Dosage: 500 MG, QD
     Route: 048
     Dates: start: 20080331, end: 20080411
  2. ASACOL [Concomitant]
     Indication: INFLAMMATION
     Dosage: 800 MG, TID
     Route: 048
  3. FOLIC ACID [Concomitant]
     Indication: IRON DEFICIENCY
  4. VITAMIN B6 [Concomitant]
     Indication: IRON DEFICIENCY

REACTIONS (4)
  - BLISTER [None]
  - PYREXIA [None]
  - SKIN NECROSIS [None]
  - TOXIC EPIDERMAL NECROLYSIS [None]
